FAERS Safety Report 7295991-8 (Version None)
Quarter: 2011Q1

REPORT INFORMATION
  Report Type: 
  Country: None (occurrence: None)
  Receive Date: 20110216
  Receipt Date: 20101207
  Transmission Date: 20110831
  Serious: No
  Sender: FDA-Public Use
  Company Number: US-ABBOTT-10P-163-0679599-00

PATIENT
  Sex: Male
  Weight: 85.352 kg

DRUGS (5)
  1. ALLOPURINOL [Concomitant]
     Indication: GOUT
     Dates: start: 20081114
  2. SIMCOR [Suspect]
     Indication: HIGH DENSITY LIPOPROTEIN DECREASED
     Dosage: 1000/20MG
     Route: 048
     Dates: start: 20100601
  3. FLOMAX [Concomitant]
     Indication: PROSTATOMEGALY
  4. SIMCOR [Suspect]
     Indication: PROPHYLAXIS
     Dosage: 500/20MG DAILY
     Route: 048
     Dates: start: 20081114, end: 20100601
  5. IC FOSINOPRIL SODIUM [Concomitant]
     Indication: HYPERTENSION

REACTIONS (6)
  - LETHARGY [None]
  - MYALGIA [None]
  - BACK PAIN [None]
  - DEPRESSION [None]
  - GOUT [None]
  - ARTHRALGIA [None]
